FAERS Safety Report 8237167-3 (Version None)
Quarter: 2012Q1

REPORT INFORMATION
  Report Type: 
  Country: None (occurrence: None)
  Receive Date: 20120327
  Receipt Date: 20120320
  Transmission Date: 20120608
  Serious: Yes (Other)
  Sender: FDA-Public Use
  Company Number: US-BAYER-201038598NA

PATIENT
  Age: 54 Year
  Sex: Male
  Weight: 93.878 kg

DRUGS (25)
  1. GADOLINIUM IN UNSPECIFIED DRUG [Suspect]
     Indication: NUCLEAR MAGNETIC RESONANCE IMAGING BRAIN
     Dosage: UNK
     Dates: start: 19990920, end: 19990920
  2. GADOLINIUM IN UNSPECIFIED DRUG [Suspect]
     Dosage: UNK
     Dates: start: 20070321, end: 20070321
  3. CALCIUM ACETATE [Concomitant]
     Dosage: 2 DF, QD
  4. MAGNEVIST [Suspect]
     Indication: NUCLEAR MAGNETIC RESONANCE IMAGING
  5. PROHANCE [Suspect]
     Indication: NUCLEAR MAGNETIC RESONANCE IMAGING
  6. GADOLINIUM IN UNSPECIFIED DRUG [Suspect]
     Dosage: UNK
     Dates: start: 20060204, end: 20060204
  7. ACETAMINOPHEN AND HYDROCODONE BITARTRATE [Concomitant]
     Indication: PAIN
     Dosage: 1 TO 2 TABLETS EVERY 6 HOURS, PRN
     Dates: start: 20090101
  8. ASPIRIN [Concomitant]
     Dosage: 81 MG, QD
  9. PHOSLO [Concomitant]
     Dosage: 3 DF, WITH MEALS
  10. GADOLINIUM IN UNSPECIFIED DRUG [Suspect]
     Dosage: UNK
     Dates: start: 20081118, end: 20081118
  11. SENSIPAR [Concomitant]
     Dosage: 90 MG, QD
  12. GADOLINIUM IN UNSPECIFIED DRUG [Suspect]
     Dosage: UNK
     Dates: start: 20060114, end: 20060114
  13. RENAL [VIT C,VIT H,B5,B12,B9,B3,B6,B2,B1 HCL] [Concomitant]
     Dosage: 1 DF, QD
  14. RENA-VITE [VIT C,VIT H,B5,B12,B9,B3,B6,B2,B1 HCL] [Concomitant]
     Dosage: 1 DF, QD
     Dates: start: 20100101
  15. OMNISCAN [Suspect]
     Indication: NUCLEAR MAGNETIC RESONANCE IMAGING
  16. OPTIMARK [Suspect]
     Indication: NUCLEAR MAGNETIC RESONANCE IMAGING
  17. MULTIHANCE [Suspect]
     Indication: NUCLEAR MAGNETIC RESONANCE IMAGING
  18. GADOLINIUM IN UNSPECIFIED DRUG [Suspect]
     Indication: NUCLEAR MAGNETIC RESONANCE IMAGING
     Dosage: UNK
     Dates: start: 19990927, end: 19990927
  19. GADOLINIUM IN UNSPECIFIED DRUG [Suspect]
     Indication: FISTULOGRAM
     Dosage: UNK
     Dates: start: 19991008, end: 19991008
  20. GADOLINIUM IN UNSPECIFIED DRUG [Suspect]
     Dosage: UNK
     Dates: start: 19991013, end: 19991013
  21. GADOLINIUM IN UNSPECIFIED DRUG [Suspect]
     Dosage: UNK
     Dates: start: 20080813, end: 20080813
  22. RENVELA [Concomitant]
     Dosage: 3 DF, QD
  23. GADOLINIUM IN UNSPECIFIED DRUG [Suspect]
     Dosage: UNK
     Dates: start: 19991028, end: 19991028
  24. GADOLINIUM IN UNSPECIFIED DRUG [Suspect]
     Dosage: UNK
     Dates: start: 20080319, end: 20080319
  25. IRON [Concomitant]
     Dosage: UNK
     Dates: start: 20070101

REACTIONS (28)
  - ERYTHEMA [None]
  - SKIN INDURATION [None]
  - GASTROINTESTINAL HAEMORRHAGE [None]
  - LIPOMA [None]
  - SKIN SWELLING [None]
  - PATELLOFEMORAL PAIN SYNDROME [None]
  - GASTRITIS [None]
  - DEFORMITY [None]
  - SKIN TIGHTNESS [None]
  - HYPERKERATOSIS [None]
  - EMOTIONAL DISORDER [None]
  - DRY SKIN [None]
  - RENAL FAILURE CHRONIC [None]
  - SKIN DISCOLOURATION [None]
  - PAIN [None]
  - MORPHOEA [None]
  - NEPHROGENIC SYSTEMIC FIBROSIS [None]
  - SKIN HYPERTROPHY [None]
  - HAND DEFORMITY [None]
  - MENTAL DISORDER [None]
  - HAEMODIALYSIS [None]
  - OEDEMA PERIPHERAL [None]
  - SCLERODACTYLIA [None]
  - OSTEOARTHRITIS [None]
  - TENDONITIS [None]
  - GENERAL PHYSICAL HEALTH DETERIORATION [None]
  - RASH PAPULAR [None]
  - HAEMORRHOIDS [None]
